FAERS Safety Report 8019158-0 (Version None)
Quarter: 2012Q1

REPORT INFORMATION
  Report Type: 
  Country: None (occurrence: None)
  Receive Date: 20120103
  Receipt Date: 20120103
  Transmission Date: 20120608
  Serious: Yes (Other)
  Sender: FDA-Public Use
  Company Number: DE-AMGEN-DEUSP2011057501

PATIENT
  Age: 76 Year
  Sex: Female

DRUGS (2)
  1. MARCUMAR [Concomitant]
  2. PROLIA [Suspect]
     Indication: OSTEOPOROSIS
     Dosage: 60 MG, UNK
     Route: 058
     Dates: start: 20110915

REACTIONS (3)
  - RASH GENERALISED [None]
  - PRURITUS GENERALISED [None]
  - DRUG HYPERSENSITIVITY [None]
